FAERS Safety Report 8159436-8 (Version None)
Quarter: 2012Q1

REPORT INFORMATION
  Report Type: 
  Country: None (occurrence: None)
  Receive Date: 20120223
  Receipt Date: 20120213
  Transmission Date: 20120608
  Serious: Yes (Other)
  Sender: FDA-Public Use
  Company Number: GB-TEVA-322566ISR

PATIENT
  Age: 57 Year
  Sex: Female

DRUGS (1)
  1. CISPLATIN [Suspect]
     Indication: SQUAMOUS CELL CARCINOMA OF THE CERVIX
     Dosage: 40 MG/M2; 40 MG/M2 WEEKLY
     Route: 042

REACTIONS (1)
  - RETINAL ARTERY OCCLUSION [None]
